FAERS Safety Report 9619611 (Version 1)
Quarter: 2013Q4

REPORT INFORMATION
  Report Type: Spontaneous
  Country: GB (occurrence: GB)
  Receive Date: 20131014
  Receipt Date: 20131014
  Transmission Date: 20140711
  Serious: Yes (Death, Other)
  Sender: FDA-Public Use
  Company Number: GB-BRISTOL-MYERS SQUIBB COMPANY-19498922

PATIENT
  Age: 44 Year
  Sex: Female

DRUGS (1)
  1. YERVOY [Suspect]
     Indication: SKIN CANCER
     Dosage: 2ND-OCT12
     Dates: start: 201209

REACTIONS (2)
  - Death [Fatal]
  - Colitis [Unknown]
